FAERS Safety Report 11787652 (Version 1)
Quarter: 2015Q4

REPORT INFORMATION
  Report Type: Spontaneous
  Country: IT (occurrence: IT)
  Receive Date: 20151130
  Receipt Date: 20151130
  Transmission Date: 20160305
  Serious: Yes (Other)
  Sender: FDA-Public Use
  Company Number: IT-BAYER-2015-474610

PATIENT
  Age: 86 Year
  Sex: Female

DRUGS (4)
  1. CARDIOASPIRIN [Interacting]
     Active Substance: ASPIRIN
     Dosage: DAILY DOSE 100 MG
     Route: 048
  2. LANTUS [Suspect]
     Active Substance: INSULIN GLARGINE
     Indication: TYPE 2 DIABETES MELLITUS
     Dosage: DAILY DOSE 3000 IU
     Route: 058
  3. FEMIPRES [Interacting]
     Active Substance: MOEXIPRIL HYDROCHLORIDE
     Dosage: DAILY DOSE 15 MG
     Route: 048
  4. NICARDIPINE HYDROCHLORIDE. [Concomitant]
     Active Substance: NICARDIPINE HYDROCHLORIDE
     Route: 048

REACTIONS (3)
  - Hypoglycaemia [Recovering/Resolving]
  - Vomiting [Recovering/Resolving]
  - Loss of consciousness [Recovering/Resolving]

NARRATIVE: CASE EVENT DATE: 20120815
